FAERS Safety Report 9070904 (Version 1)
Quarter: 2013Q1

REPORT INFORMATION
  Report Type: Spontaneous
  Country: US (occurrence: US)
  Receive Date: 20130206
  Receipt Date: 20130206
  Transmission Date: 20140127
  Serious: No
  Sender: FDA-Public Use
  Company Number: US-ALLERGAN-1206643US

PATIENT
  Age: 81 Year
  Sex: Female

DRUGS (8)
  1. RESTASIS? [Suspect]
     Indication: DRY EYE
     Dosage: 2 GTT, BID
     Route: 047
     Dates: start: 201201
  2. REFRESH LIQUIGEL [Suspect]
     Indication: DRY EYE
     Dosage: 2 GTT, Q3HR
     Route: 047
     Dates: start: 201204
  3. ATENOLOL [Concomitant]
     Indication: ARRHYTHMIA
     Dosage: 1 UNK, UNK
     Route: 048
  4. LANSOPRAZOLE [Concomitant]
     Indication: GASTROOESOPHAGEAL REFLUX DISEASE
     Dosage: 1 UNK, UNK
     Route: 048
  5. NORTRIPTYLINE [Concomitant]
     Indication: DEPRESSION
     Dosage: UNK
     Route: 048
  6. KLOR-CON [Concomitant]
     Indication: MINERAL SUPPLEMENTATION
     Dosage: UNK
     Route: 048
  7. PRESERVE VISION [Concomitant]
     Indication: SUPPLEMENTATION THERAPY
     Dosage: UNK
     Route: 048
  8. OSCAL                              /00108001/ [Concomitant]
     Indication: SUPPLEMENTATION THERAPY
     Dosage: UNK
     Route: 048

REACTIONS (2)
  - Eye discharge [Not Recovered/Not Resolved]
  - Drug ineffective [Unknown]
